FAERS Safety Report 4864891-2 (Version None)
Quarter: 2005Q4

REPORT INFORMATION
  Report Type: 
  Country: None (occurrence: None)
  Receive Date: 20051201
  Receipt Date: 20050811
  Transmission Date: 20060501
  Serious: No
  Sender: FDA-Public Use
  Company Number: 2005PV001117

PATIENT
  Age: 74 Year
  Sex: Female
  Weight: 90.2658 kg

DRUGS (13)
  1. BYETTA [Suspect]
     Indication: DIABETES MELLITUS NON-INSULIN-DEPENDENT
     Dosage: 5 MCG; BID; SC
     Route: 058
     Dates: start: 20050810, end: 20050801
  2. AVANDIA [Concomitant]
  3. ATENOLOL [Concomitant]
  4. CRESTOR [Concomitant]
  5. LISINOPRIL [Concomitant]
  6. L-THYROXINE [Concomitant]
  7. ZOLOFT [Concomitant]
  8. ECOTRIN [Concomitant]
  9. HUMALOG [Concomitant]
  10. LANTUS [Concomitant]
  11. HUMALOG MIX 75/25 [Concomitant]
  12. HUMULIN [Concomitant]
  13. AMARYL [Concomitant]

REACTIONS (3)
  - BLOOD GLUCOSE INCREASED [None]
  - DECREASED APPETITE [None]
  - MALAISE [None]
